FAERS Safety Report 8871283 (Version 2)
Quarter: 2013Q1

REPORT INFORMATION
  Report Type: Spontaneous
  Country: US (occurrence: None)
  Receive Date: 20121025
  Receipt Date: 20121107
  Transmission Date: 20140127
  Serious: Yes (Hospitalization)
  Sender: FDA-Public Use
  Company Number: CIO12020049

PATIENT
  Sex: Female

DRUGS (3)
  1. METAMUCIL [Suspect]
     Indication: BOWEL PREPARATION
     Dosage: 1.5 TBSP
     Route: 048
     Dates: start: 20120810
  2. COLON HEALTH PROBIOTIC [Concomitant]
  3. PREVACID (LANSOPRAZOLE) [Concomitant]

REACTIONS (11)
  - Haemorrhoidal haemorrhage [None]
  - Diarrhoea [None]
  - Flatulence [None]
  - Abdominal distension [None]
  - Gastrointestinal sounds abnormal [None]
  - Drug prescribing error [None]
  - Incorrect drug administration duration [None]
  - Drug ineffective [None]
  - Incorrect dose administered [None]
  - Condition aggravated [None]
  - Dehydration [None]
